FAERS Safety Report 25604585 (Version 1)
Quarter: 2025Q3

REPORT INFORMATION
  Report Type: Spontaneous
  Country: GB (occurrence: GB)
  Receive Date: 20250725
  Receipt Date: 20250725
  Transmission Date: 20251020
  Serious: Yes (Other)
  Sender: AUROBINDO
  Company Number: GB-MHRA-MED-202507141317294910-GPYQT

PATIENT
  Age: 21 Year
  Sex: Male
  Weight: 65 kg

DRUGS (1)
  1. CITALOPRAM [Suspect]
     Active Substance: CITALOPRAM
     Indication: Adverse drug reaction
     Route: 065
     Dates: start: 20250704

REACTIONS (2)
  - Hypoxia [Recovering/Resolving]
  - Medication error [Unknown]

NARRATIVE: CASE EVENT DATE: 20250713
